FAERS Safety Report 18430927 (Version 2)
Quarter: 2020Q4

REPORT INFORMATION
  Report Type: Other
  Country: US (occurrence: US)
  Receive Date: 20201027
  Receipt Date: 20201214
  Transmission Date: 20210114
  Serious: Yes (Other)
  Sender: FDA-Public Use
  Company Number: US-AMAG PHARMACEUTICALS, INC.-AMAG202003663

PATIENT
  Age: 29 Year
  Sex: Female
  Weight: 64.92 kg

DRUGS (2)
  1. MAKENA [Suspect]
     Active Substance: HYDROXYPROGESTERONE CAPROATE
     Indication: PREMATURE DELIVERY
     Route: 058
     Dates: start: 20200625, end: 20200930
  2. PRENATAL VITAMIN (GUMMIES) [Concomitant]
     Indication: PREGNANCY
     Dates: start: 20200528

REACTIONS (4)
  - Premature labour [Not Recovered/Not Resolved]
  - Shortened cervix [Unknown]
  - Uterine contractions during pregnancy [Not Recovered/Not Resolved]
  - Blood iron decreased [Unknown]

NARRATIVE: CASE EVENT DATE: 20201007
